FAERS Safety Report 5667216-8 (Version None)
Quarter: 2008Q1

REPORT INFORMATION
  Report Type: 
  Country: None (occurrence: None)
  Receive Date: 20080315
  Receipt Date: 20080115
  Transmission Date: 20080703
  Serious: No
  Sender: FDA-Public Use
  Company Number: US-ABBOTT-08P-163-0433863-00

PATIENT
  Sex: Female
  Weight: 96.702 kg

DRUGS (3)
  1. HUMIRA [Suspect]
     Indication: PSORIASIS
     Route: 058
     Dates: start: 20071219
  2. HUMIRA [Suspect]
     Indication: PSORIATIC ARTHROPATHY
  3. WELLBUTRIN XL [Concomitant]
     Indication: DEPRESSION
     Route: 048

REACTIONS (3)
  - INJECTION SITE PRURITUS [None]
  - PAIN IN EXTREMITY [None]
  - PSORIASIS [None]
